FAERS Safety Report 6424578-1 (Version None)
Quarter: 2009Q4

REPORT INFORMATION
  Report Type: 
  Country: None (occurrence: None)
  Receive Date: 20091103
  Receipt Date: 20091020
  Transmission Date: 20100525
  Serious: Yes (Other)
  Sender: FDA-Public Use
  Company Number: PHHY2009DE45613

PATIENT
  Sex: Female

DRUGS (2)
  1. LEPONEX [Suspect]
     Dosage: 650 MG/DAY
     Route: 048
  2. LITHIUM [Concomitant]

REACTIONS (3)
  - DRUG LEVEL INCREASED [None]
  - PLEURAL EFFUSION [None]
  - PLEURISY [None]
